FAERS Safety Report 15851448 (Version 1)
Quarter: 2019Q1

REPORT INFORMATION
  Report Type: Spontaneous
  Country: PT (occurrence: PT)
  Receive Date: 20190122
  Receipt Date: 20190122
  Transmission Date: 20190417
  Serious: Yes (Other)
  Sender: FDA-Public Use
  Company Number: PT-AUROBINDO-AUR-APL-2019-002317

PATIENT
  Age: 65 Year
  Sex: Female

DRUGS (3)
  1. ROSUVASTATIN. [Suspect]
     Active Substance: ROSUVASTATIN
     Indication: DYSLIPIDAEMIA
     Dosage: 20 MILLIGRAM (MAXIMUM TOLERATED DOSES)
     Route: 065
  2. NICOTINIC ACID [Suspect]
     Active Substance: NIACIN
     Indication: DYSLIPIDAEMIA
     Dosage: 1 GRAM (MAXIMUM TOLERATED DOSES)
     Route: 065
  3. EZETIMIBE TABLETS [Suspect]
     Active Substance: EZETIMIBE
     Indication: DYSLIPIDAEMIA
     Dosage: 10 MG (MAXIMUM TOLERATED DOSES)
     Route: 048

REACTIONS (1)
  - Drug ineffective [Unknown]
